FAERS Safety Report 16750313 (Version 1)
Quarter: 2019Q3

REPORT INFORMATION
  Report Type: Spontaneous
  Country: US (occurrence: US)
  Receive Date: 20190828
  Receipt Date: 20190828
  Transmission Date: 20191005
  Serious: No
  Sender: FDA-Public Use
  Company Number: US-ASTRAZENECA-2019SF19306

PATIENT
  Age: 33 Year
  Sex: Male

DRUGS (2)
  1. SEROQUEL [Suspect]
     Active Substance: QUETIAPINE FUMARATE
     Indication: DRUG DEPENDENCE
     Dosage: QUETIAPINE FUMARATE
     Route: 048
  2. SEROQUEL [Suspect]
     Active Substance: QUETIAPINE FUMARATE
     Indication: DRUG DEPENDENCE
     Route: 048
     Dates: start: 2003

REACTIONS (4)
  - Drug dependence [Unknown]
  - Cognitive disorder [Unknown]
  - Drug ineffective [Unknown]
  - Road traffic accident [Unknown]
